FAERS Safety Report 24231432 (Version 3)
Quarter: 2024Q3

REPORT INFORMATION
  Report Type: Spontaneous
  Country: US (occurrence: US)
  Receive Date: 20240821
  Receipt Date: 20240906
  Transmission Date: 20241016
  Serious: No
  Sender: AMGEN
  Company Number: US-AMGEN-USASP2024164297

PATIENT
  Age: 52 Year
  Sex: Male

DRUGS (2)
  1. REPATHA [Suspect]
     Active Substance: EVOLOCUMAB
     Indication: Hyperlipidaemia
     Dosage: 140 MILLIGRAM, Q2WK
     Route: 058
     Dates: start: 2023
  2. REPATHA [Suspect]
     Active Substance: EVOLOCUMAB
     Indication: Arteriosclerosis

REACTIONS (8)
  - Incorrect dose administered by device [Unknown]
  - Accidental exposure to product [Unknown]
  - Pain in extremity [Not Recovered/Not Resolved]
  - Localised infection [Not Recovered/Not Resolved]
  - Erythema [Not Recovered/Not Resolved]
  - Injury associated with device [Not Recovered/Not Resolved]
  - Fear [Not Recovered/Not Resolved]
  - Wrong technique in product usage process [Unknown]

NARRATIVE: CASE EVENT DATE: 20240814
